APPROVED DRUG PRODUCT: NEVIRAPINE
Active Ingredient: NEVIRAPINE
Strength: 100MG
Dosage Form/Route: TABLET, EXTENDED RELEASE;ORAL
Application: A207467 | Product #001
Applicant: TECHNOLOGY ORGANIZED LLC
Approved: Jul 31, 2017 | RLD: No | RS: No | Type: DISCN